FAERS Safety Report 4936774-0 (Version None)
Quarter: 2006Q1

REPORT INFORMATION
  Report Type: 
  Country: None (occurrence: None)
  Receive Date: 20060307
  Receipt Date: 20060227
  Transmission Date: 20060701
  Serious: Yes (Hospitalization, Disabling)
  Sender: FDA-Public Use
  Company Number: US-MERCK-0603USA00594

PATIENT
  Age: 41 Year
  Sex: Female
  Weight: 100 kg

DRUGS (3)
  1. VIOXX [Suspect]
     Indication: MONARTHRITIS
     Route: 065
     Dates: start: 20020201, end: 20020101
  2. [THERAPY UNSPECIFIED] [Concomitant]
     Indication: GLAUCOMA
     Route: 065
  3. MAXZIDE [Concomitant]
     Route: 065

REACTIONS (3)
  - ADVERSE EVENT [None]
  - ARTERIOSPASM CORONARY [None]
  - DYSPNOEA [None]
